FAERS Safety Report 4455422-X (Version None)
Quarter: 2004Q3

REPORT INFORMATION
  Report Type: 
  Country: None (occurrence: None)
  Receive Date: 20040922
  Receipt Date: 20040909
  Transmission Date: 20050211
  Serious: Yes (Hospitalization)
  Sender: FDA-Public Use
  Company Number: GB-JNJFOC-20040902514

PATIENT
  Sex: Female

DRUGS (14)
  1. REMICADE [Suspect]
     Indication: RHEUMATOID ARTHRITIS
     Route: 042
  2. HYDRALAZINE HCL [Concomitant]
  3. ATENOLOL [Concomitant]
  4. PREDNISOLONE [Concomitant]
  5. BEZAFIBRATE [Concomitant]
  6. ATORVASTATIN CALCIUM [Concomitant]
  7. LOSARTAN POTASSIUM [Concomitant]
  8. METFORMIN HCL [Concomitant]
  9. MIXITARD [Concomitant]
  10. MIXITARD [Concomitant]
  11. CO-CODAMOL [Concomitant]
  12. CO-CODAMOL [Concomitant]
  13. TEMAZEPAM [Concomitant]
  14. LEFLUNOMIDE [Concomitant]

REACTIONS (2)
  - COLITIS COLLAGENOUS [None]
  - IRON DEFICIENCY ANAEMIA [None]
